FAERS Safety Report 4699243-1 (Version None)
Quarter: 2005Q2

REPORT INFORMATION
  Report Type: 
  Country: None (occurrence: None)
  Receive Date: 20050622
  Receipt Date: 20050609
  Transmission Date: 20051028
  Serious: Yes (Other)
  Sender: FDA-Public Use
  Company Number: 2005079573

PATIENT
  Age: 49 Year
  Sex: Female
  Weight: 101 kg

DRUGS (3)
  1. VIAGRA [Suspect]
     Indication: PULMONARY HYPERTENSION
     Dosage: ORAL
     Route: 048
     Dates: start: 20030725
  2. WARFARIN SODIUM [Concomitant]
  3. DILTIAZEM [Concomitant]

REACTIONS (2)
  - CATARACT [None]
  - VISION BLURRED [None]
